FAERS Safety Report 5412262-2 (Version None)
Quarter: 2007Q3

REPORT INFORMATION
  Report Type: 
  Country: None (occurrence: None)
  Receive Date: 20070810
  Receipt Date: 20070810
  Transmission Date: 20080115
  Serious: Yes (Hospitalization)
  Sender: FDA-Public Use
  Company Number: None

PATIENT
  Age: 88 Year
  Sex: Male
  Weight: 75.3 kg

DRUGS (2)
  1. MIRTAZAPINE [Suspect]
     Indication: DEPRESSION
     Dosage: 15MG EVERY DAY PO
     Route: 048
     Dates: start: 20050802, end: 20070524
  2. MIRTAZAPINE [Suspect]
     Indication: SLEEP DISORDER
     Dosage: 15MG EVERY DAY PO
     Route: 048
     Dates: start: 20050802, end: 20070524

REACTIONS (3)
  - ASTHENIA [None]
  - CONFUSIONAL STATE [None]
  - INAPPROPRIATE ANTIDIURETIC HORMONE SECRETION [None]
